FAERS Safety Report 5110256-8 (Version None)
Quarter: 2006Q3

REPORT INFORMATION
  Report Type: 
  Country: None (occurrence: None)
  Receive Date: 20060921
  Receipt Date: 20060630
  Transmission Date: 20061208
  Serious: Yes (Other)
  Sender: FDA-Public Use
  Company Number: 449806

PATIENT
  Age: 65 Year
  Sex: Male

DRUGS (4)
  1. DILATREND [Suspect]
     Indication: ESSENTIAL HYPERTENSION
     Dosage: 12.5MG PER DAY
     Route: 048
     Dates: start: 20000101, end: 20060615
  2. CO-DIOVAN [Concomitant]
  3. PROSTAMED [Concomitant]
  4. SAW PALMETTO [Concomitant]

REACTIONS (3)
  - PROSTATE CANCER [None]
  - PROSTATE EXAMINATION ABNORMAL [None]
  - PROSTATIC SPECIFIC ANTIGEN INCREASED [None]
